FAERS Safety Report 4288904-4 (Version None)
Quarter: 2004Q1

REPORT INFORMATION
  Report Type: 
  Country: None (occurrence: None)
  Receive Date: 20040203
  Receipt Date: 20031121
  Transmission Date: 20041129
  Serious: Yes (Other)
  Sender: FDA-Public Use
  Company Number: 200329025BWH

PATIENT
  Age: 36 Year
  Sex: Male
  Weight: 92.5338 kg

DRUGS (1)
  1. AVELOX [Suspect]
     Indication: SINUSITIS
     Dosage: 400 MG, ONCE, ORAL
     Route: 048

REACTIONS (6)
  - ANAPHYLACTIC REACTION [None]
  - DYSPNOEA [None]
  - OEDEMA [None]
  - OEDEMA MOUTH [None]
  - ORAL PRURITUS [None]
  - OROPHARYNGEAL SWELLING [None]
